FAERS Safety Report 19154774 (Version 3)
Quarter: 2022Q2

REPORT INFORMATION
  Report Type: Spontaneous
  Country: US (occurrence: None)
  Receive Date: 20210419
  Receipt Date: 20220428
  Transmission Date: 20220720
  Serious: Yes (Hospitalization, Other)
  Sender: FDA-Public Use
  Company Number: 2021A326124

PATIENT

DRUGS (29)
  1. NEXIUM 24HR [Suspect]
     Active Substance: ESOMEPRAZOLE MAGNESIUM
     Indication: Product used for unknown indication
     Dosage: EVERY DAY
     Route: 048
     Dates: start: 200711, end: 201611
  2. PRILOSEC [Suspect]
     Active Substance: OMEPRAZOLE MAGNESIUM
     Indication: Gastrooesophageal reflux disease
     Dosage: EVERY DAY
     Route: 048
     Dates: start: 200711, end: 201611
  3. PRILOSEC [Suspect]
     Active Substance: OMEPRAZOLE MAGNESIUM
     Indication: Gastric ulcer
     Dosage: EVERY DAY
     Route: 048
     Dates: start: 200711, end: 201611
  4. PRILOSEC [Suspect]
     Active Substance: OMEPRAZOLE MAGNESIUM
     Indication: Product used for unknown indication
     Dosage: EVERY DAY
     Route: 048
     Dates: start: 200711, end: 201611
  5. PRILOSEC [Suspect]
     Active Substance: OMEPRAZOLE MAGNESIUM
     Indication: Gastrooesophageal reflux disease
     Route: 048
  6. PRILOSEC [Suspect]
     Active Substance: OMEPRAZOLE MAGNESIUM
     Indication: Gastric ulcer
     Route: 048
  7. PRILOSEC [Suspect]
     Active Substance: OMEPRAZOLE MAGNESIUM
     Indication: Product used for unknown indication
     Route: 048
  8. PRILOSEC [Suspect]
     Active Substance: OMEPRAZOLE MAGNESIUM
     Indication: Gastrooesophageal reflux disease
     Dosage: GENERIC
     Route: 048
  9. PRILOSEC [Suspect]
     Active Substance: OMEPRAZOLE MAGNESIUM
     Indication: Gastric ulcer
     Dosage: GENERIC
     Route: 048
  10. PRILOSEC [Suspect]
     Active Substance: OMEPRAZOLE MAGNESIUM
     Indication: Product used for unknown indication
     Dosage: GENERIC
     Route: 048
  11. PRILOSEC [Suspect]
     Active Substance: OMEPRAZOLE MAGNESIUM
     Indication: Gastrooesophageal reflux disease
     Route: 048
  12. PRILOSEC [Suspect]
     Active Substance: OMEPRAZOLE MAGNESIUM
     Indication: Gastric ulcer
     Route: 048
  13. PRILOSEC [Suspect]
     Active Substance: OMEPRAZOLE MAGNESIUM
     Indication: Product used for unknown indication
     Route: 048
  14. OMEPRAZOLE [Suspect]
     Active Substance: OMEPRAZOLE
     Indication: Gastric ulcer
     Dosage: GENERIC
     Route: 048
  15. OMEPRAZOLE [Suspect]
     Active Substance: OMEPRAZOLE
     Indication: Gastrooesophageal reflux disease
     Dosage: GENERIC
     Route: 048
  16. OMEPRAZOLE [Suspect]
     Active Substance: OMEPRAZOLE
     Indication: Gastric ulcer
     Dosage: GENERIC
     Route: 048
  17. OMEPRAZOLE [Suspect]
     Active Substance: OMEPRAZOLE
     Indication: Gastrooesophageal reflux disease
     Dosage: GENERIC
     Route: 048
  18. OMEPRAZOLE [Suspect]
     Active Substance: OMEPRAZOLE
     Indication: Product used for unknown indication
     Dosage: PROLONGED-RELEASE CAPSULE40.0MG UNKNOWN
     Route: 065
     Dates: start: 20211105, end: 20220126
  19. DEXILANT [Suspect]
     Active Substance: DEXLANSOPRAZOLE
     Indication: Gastrooesophageal reflux disease
     Dosage: EVERY DAY
     Route: 065
     Dates: start: 200711, end: 201611
  20. PREVACID [Suspect]
     Active Substance: LANSOPRAZOLE
     Indication: Gastrooesophageal reflux disease
     Route: 048
  21. PREVACID [Suspect]
     Active Substance: LANSOPRAZOLE
     Indication: Product used for unknown indication
     Route: 048
  22. PREVACID [Suspect]
     Active Substance: LANSOPRAZOLE
     Indication: Gastrooesophageal reflux disease
     Dosage: GENERIC
     Route: 048
     Dates: start: 2016, end: 20200301
  23. PREVACID [Suspect]
     Active Substance: LANSOPRAZOLE
     Indication: Product used for unknown indication
     Dosage: GENERIC
     Route: 048
     Dates: start: 2016, end: 20200301
  24. PREVACID [Suspect]
     Active Substance: LANSOPRAZOLE
     Indication: Gastrooesophageal reflux disease
     Dosage: GENERIC
     Route: 048
  25. PREVACID [Suspect]
     Active Substance: LANSOPRAZOLE
     Indication: Product used for unknown indication
     Dosage: GENERIC
     Route: 048
  26. LANSOPRAZOLE [Suspect]
     Active Substance: LANSOPRAZOLE
     Indication: Product used for unknown indication
     Dosage: GENERIC
     Route: 048
     Dates: start: 2016, end: 20200301
  27. LANSOPRAZOLE [Suspect]
     Active Substance: LANSOPRAZOLE
     Indication: Product used for unknown indication
     Dosage: GENERIC
     Route: 048
  28. LANSOPRAZOLE [Suspect]
     Active Substance: LANSOPRAZOLE
     Indication: Product used for unknown indication
     Dosage: GENERIC30.0MG UNKNOWN
     Route: 048
     Dates: start: 20180711, end: 20220107
  29. PREVACID 24 HR [Suspect]
     Active Substance: LANSOPRAZOLE
     Indication: Gastrooesophageal reflux disease
     Route: 065

REACTIONS (39)
  - Renal haematoma [Unknown]
  - End stage renal disease [Unknown]
  - Nephritic syndrome [Unknown]
  - Proteinuria [Unknown]
  - Albuminuria [Unknown]
  - Haemodialysis [Unknown]
  - Chronic kidney disease [Unknown]
  - Renal impairment [Unknown]
  - Anuria [Unknown]
  - Acute kidney injury [Unknown]
  - Tubulointerstitial nephritis [Unknown]
  - Intercapillary glomerulosclerosis [Unknown]
  - Pyelonephritis [Unknown]
  - Renal tubular necrosis [Unknown]
  - Cardiorenal syndrome [Unknown]
  - Renal tubular atrophy [Unknown]
  - Glomerulonephritis chronic [Unknown]
  - Renal failure [Unknown]
  - Kidney fibrosis [Unknown]
  - Diabetic nephropathy [Unknown]
  - Hypertensive nephropathy [Unknown]
  - Renal cyst [Unknown]
  - Nephropathy [Unknown]
  - Microalbuminuria [Unknown]
  - Nocturia [Unknown]
  - Renal disorder [Unknown]
  - Renal colic [Unknown]
  - Urinary incontinence [Unknown]
  - Pollakiuria [Unknown]
  - Oliguria [Unknown]
  - Micturition urgency [Unknown]
  - Dialysis [Unknown]
  - Dysuria [Unknown]
  - Focal segmental glomerulosclerosis [Unknown]
  - Nephrogenic anaemia [Unknown]
  - Polyuria [Unknown]
  - Device dependence [Unknown]
  - Nephrosclerosis [Unknown]
  - Essential hypertension [Unknown]
